FAERS Safety Report 5067649-7 (Version None)
Quarter: 2006Q3

REPORT INFORMATION
  Report Type: 
  Country: None (occurrence: None)
  Receive Date: 20060728
  Receipt Date: 20060718
  Transmission Date: 20061208
  Serious: Yes (Other)
  Sender: FDA-Public Use
  Company Number: 2006090441

PATIENT
  Age: 7 Year
  Sex: Male

DRUGS (1)
  1. BENYLIN DRY COUGHS NON-DROWSY (DEXTROMETHORPHAN) [Suspect]
     Dosage: ORAL
     Route: 048

REACTIONS (2)
  - HALLUCINATION [None]
  - URINE ANALYSIS ABNORMAL [None]
